FAERS Safety Report 11950559 (Version 2)
Quarter: 2016Q2

REPORT INFORMATION
  Report Type: Spontaneous
  Country: US (occurrence: US)
  Receive Date: 20160126
  Receipt Date: 20160518
  Transmission Date: 20160815
  Serious: Yes (Hospitalization, Other)
  Sender: FDA-Public Use
  Company Number: US-PFIZER INC-2016031056

PATIENT
  Age: 47 Year
  Sex: Male

DRUGS (1)
  1. LYRICA [Suspect]
     Active Substance: PREGABALIN
     Indication: NEUROPATHY PERIPHERAL
     Dosage: 200 MG, 4X/DAY

REACTIONS (6)
  - Drug dependence [Unknown]
  - Emotional distress [Not Recovered/Not Resolved]
  - Pain [Unknown]
  - Feeling abnormal [Unknown]
  - Overdose [Unknown]
  - Crying [Unknown]
